FAERS Safety Report 19376577 (Version 5)
Quarter: 2021Q3

REPORT INFORMATION
  Report Type: Report from Study
  Country: US (occurrence: US)
  Receive Date: 20210604
  Receipt Date: 20210726
  Transmission Date: 20211014
  Serious: Yes (Life-Threatening)
  Sender: FDA-Public Use
  Company Number: US-ALKERMES INC.-ALK-2021-002709

PATIENT
  Age: 35 Year
  Sex: Male

DRUGS (23)
  1. BUPRENORPHINE. [Suspect]
     Active Substance: BUPRENORPHINE
     Indication: DRUG USE DISORDER
     Dosage: 2.0 MILLIGRAM, QD
     Route: 048
     Dates: start: 20210522, end: 20210522
  2. NALTREXONE [Suspect]
     Active Substance: NALTREXONE
     Indication: DRUG USE DISORDER
     Dosage: 0.5 MILLIGRAM, QD
     Route: 048
     Dates: start: 20210524, end: 20210524
  3. CLONIDINE. [Concomitant]
     Active Substance: CLONIDINE
     Indication: DRUG WITHDRAWAL SYNDROME
     Dosage: 0.30 MILLIGRAM, QD
     Route: 065
     Dates: start: 20210524, end: 20210524
  4. CLONIDINE. [Concomitant]
     Active Substance: CLONIDINE
     Dosage: 0.10 MILLIGRAM, QD
     Route: 065
     Dates: start: 20210521, end: 20210521
  5. NORVASC [Concomitant]
     Active Substance: AMLODIPINE BESYLATE
     Indication: WITHDRAWAL SYNDROME
     Dosage: 10 MILLIGRAM, QD
     Dates: start: 20210524, end: 20210524
  6. NORVASC [Concomitant]
     Active Substance: AMLODIPINE BESYLATE
     Indication: INSOMNIA
  7. NORVASC [Concomitant]
     Active Substance: AMLODIPINE BESYLATE
     Indication: DEPRESSIVE SYMPTOM
  8. BUPRENORPHINE. [Suspect]
     Active Substance: BUPRENORPHINE
     Dosage: 2.0 MILLIGRAM, QD
     Route: 048
     Dates: start: 20210521, end: 20210521
  9. CLONIDINE. [Concomitant]
     Active Substance: CLONIDINE
     Dosage: 0.20 MILLIGRAM, QD
     Route: 065
     Dates: start: 20210522, end: 20210522
  10. HYDROXYZINE [Concomitant]
     Active Substance: HYDROXYZINE HYDROCHLORIDE
     Indication: DEPRESSIVE SYMPTOM
  11. ZOLPIDEM [Concomitant]
     Active Substance: ZOLPIDEM TARTRATE
     Indication: DRUG WITHDRAWAL SYNDROME
     Dosage: 10 MILLIGRAM, QD
     Route: 065
     Dates: start: 20210523, end: 20210523
  12. HYDROXYZINE [Concomitant]
     Active Substance: HYDROXYZINE HYDROCHLORIDE
     Indication: WITHDRAWAL SYNDROME
     Dosage: 50 MILLIGRAM, QD
     Route: 065
     Dates: start: 20210521, end: 20210521
  13. HYDROXYZINE [Concomitant]
     Active Substance: HYDROXYZINE HYDROCHLORIDE
     Indication: INSOMNIA
  14. CLONAZEPAM. [Concomitant]
     Active Substance: CLONAZEPAM
     Dosage: 3 MILLIGRAM, QD
     Route: 065
     Dates: start: 20210523, end: 20210523
  15. LOPERAMIDE [Concomitant]
     Active Substance: LOPERAMIDE
     Indication: INSOMNIA
  16. LOPERAMIDE [Concomitant]
     Active Substance: LOPERAMIDE
     Indication: DEPRESSIVE SYMPTOM
  17. AMLODIPINE [Concomitant]
     Active Substance: AMLODIPINE BESYLATE
     Indication: PRODUCT USED FOR UNKNOWN INDICATION
     Dosage: 20 MILLIGRAM, QD
     Route: 065
  18. VIVITROL [Suspect]
     Active Substance: NALTREXONE
     Indication: DRUG USE DISORDER
     Dosage: DRUG NOT GIVEN
     Route: 030
  19. CLONAZEPAM. [Concomitant]
     Active Substance: CLONAZEPAM
     Indication: DRUG WITHDRAWAL SYNDROME
     Dosage: 2 MILLIGRAM, QD
     Route: 065
     Dates: start: 20210524, end: 20210524
  20. PROCHLORPERAZINE. [Concomitant]
     Active Substance: PROCHLORPERAZINE
     Indication: DRUG WITHDRAWAL SYNDROME
     Dosage: 10 MILLIGRAM, QD
     Route: 065
     Dates: start: 20210524, end: 20210524
  21. CLONIDINE. [Concomitant]
     Active Substance: CLONIDINE
     Dosage: 0.40 MILLIGRAM, QD
     Route: 065
     Dates: start: 20210523, end: 20210523
  22. PROCHLORPERAZINE. [Concomitant]
     Active Substance: PROCHLORPERAZINE
     Dosage: 10 MILLIGRAM, QD
     Route: 065
     Dates: start: 20210523, end: 20210523
  23. LOPERAMIDE [Concomitant]
     Active Substance: LOPERAMIDE
     Indication: WITHDRAWAL SYNDROME
     Dosage: 4 MILLIGRAM, QD
     Route: 065
     Dates: start: 20210524, end: 20210524

REACTIONS (1)
  - Suicidal ideation [Recovered/Resolved]

NARRATIVE: CASE EVENT DATE: 20210524
